FAERS Safety Report 22280696 (Version 1)
Quarter: 2023Q2

REPORT INFORMATION
  Report Type: Spontaneous
  Country: CN (occurrence: CN)
  Receive Date: 20230503
  Receipt Date: 20230503
  Transmission Date: 20230721
  Serious: Yes (Hospitalization)
  Sender: FDA-Public Use
  Company Number: CN-009507513-2304CHN010716

PATIENT
  Age: 70 Year
  Sex: Male
  Weight: 50 kg

DRUGS (12)
  1. KEYTRUDA [Suspect]
     Active Substance: PEMBROLIZUMAB
     Indication: Neoplasm malignant
     Dosage: 200 MILLIGRAM, ONCE, D1
     Route: 041
     Dates: start: 20230301, end: 20230301
  2. KEYTRUDA [Suspect]
     Active Substance: PEMBROLIZUMAB
     Dosage: 200 MILLIGRAM, ONCE, D1
     Route: 041
     Dates: start: 20230327, end: 20230327
  3. FLUOROURACIL [Suspect]
     Active Substance: FLUOROURACIL
     Indication: Neoplasm malignant
     Dosage: 1.24 GRAM, QD, D1-5
     Dates: start: 20230301, end: 20230305
  4. FLUOROURACIL [Suspect]
     Active Substance: FLUOROURACIL
     Dosage: 1 GRAM, QD, D1-5
     Dates: start: 20230327
  5. CISPLATIN [Suspect]
     Active Substance: CISPLATIN
     Indication: Neoplasm malignant
     Dosage: 39 MILLIGRAM, QD, D1-3
     Route: 041
     Dates: start: 20230301, end: 20230303
  6. CISPLATIN [Suspect]
     Active Substance: CISPLATIN
     Dosage: 30 MILLIGRAM, QD, D1-3
     Route: 041
     Dates: start: 20230327
  7. SODIUM CHLORIDE [Concomitant]
     Active Substance: SODIUM CHLORIDE
     Indication: Medication dilution
     Dosage: 500 MILLILITER, QD, D1-3
     Route: 041
     Dates: start: 20230301, end: 20230303
  8. SODIUM CHLORIDE [Concomitant]
     Active Substance: SODIUM CHLORIDE
     Dosage: 80 MILLILITER, QD, D1-5
     Dates: start: 20230301, end: 20230305
  9. SODIUM CHLORIDE [Concomitant]
     Active Substance: SODIUM CHLORIDE
     Dosage: 100 MILLILITER, ONCE
     Route: 041
     Dates: start: 20230301, end: 20230301
  10. SODIUM CHLORIDE [Concomitant]
     Active Substance: SODIUM CHLORIDE
     Dosage: 500 MILLILITER, QD, D1-3
     Route: 041
     Dates: start: 20230327
  11. SODIUM CHLORIDE [Concomitant]
     Active Substance: SODIUM CHLORIDE
     Dosage: 90 MILLILITER, QD, D1-5
     Dates: start: 20230327
  12. SODIUM CHLORIDE [Concomitant]
     Active Substance: SODIUM CHLORIDE
     Dosage: 100 MILLILITER, ONCE, D1
     Route: 041
     Dates: start: 20230327

REACTIONS (3)
  - White blood cell disorder [Recovered/Resolved]
  - Platelet disorder [Recovered/Resolved]
  - Anaemia [Unknown]

NARRATIVE: CASE EVENT DATE: 20230322
